FAERS Safety Report 12383196 (Version 1)
Quarter: 2016Q2

REPORT INFORMATION
  Report Type: Spontaneous
  Country: US (occurrence: US)
  Receive Date: 20160518
  Receipt Date: 20160518
  Transmission Date: 20160815
  Serious: No
  Sender: FDA-Public Use
  Company Number: US-PFIZER INC-2016249144

PATIENT
  Age: 38 Year
  Sex: Male

DRUGS (14)
  1. CEFEPIME [Concomitant]
     Active Substance: CEFEPIME HYDROCHLORIDE
     Dosage: 2 G, 3X/DAY
     Route: 042
  2. PANTOPRAZOLE [Concomitant]
     Active Substance: PANTOPRAZOLE SODIUM
     Dosage: 40 MG, 1X/DAY
     Route: 042
  3. VINCRISTINE SULFATE. [Suspect]
     Active Substance: VINCRISTINE SULFATE
     Indication: ACUTE LYMPHOCYTIC LEUKAEMIA
     Dosage: UNK
  4. NILOTINIB [Suspect]
     Active Substance: NILOTINIB
     Indication: ACUTE LYMPHOCYTIC LEUKAEMIA
     Dosage: UNK
  5. BOSUTINIB [Suspect]
     Active Substance: BOSUTINIB
     Indication: ACUTE LYMPHOCYTIC LEUKAEMIA
     Dosage: UNK
  6. DASATINIB [Suspect]
     Active Substance: DASATINIB
     Indication: ACUTE LYMPHOCYTIC LEUKAEMIA
     Dosage: UNK
  7. PONATINIB [Suspect]
     Active Substance: PONATINIB
     Indication: ACUTE LYMPHOCYTIC LEUKAEMIA
     Dosage: UNK
  8. VALACYCLOVIR [Concomitant]
     Active Substance: VALACYCLOVIR HYDROCHLORIDE
     Dosage: 500 MG, 2X/DAY
     Route: 048
  9. SEVELAMER [Concomitant]
     Active Substance: SEVELAMER
     Dosage: 800 MG, 3X/DAY
     Route: 048
  10. METRONIDAZOLE. [Concomitant]
     Active Substance: METRONIDAZOLE
     Dosage: 500 MG, 3X/DAY
     Route: 048
  11. ISAVUCONAZONIUM SULFATE [Concomitant]
     Active Substance: ISAVUCONAZONIUM SULFATE
     Dosage: 372 MG, 1X/DAY
     Route: 042
  12. ATOVAQUONE. [Concomitant]
     Active Substance: ATOVAQUONE
     Dosage: UNK UNK, 1X/DAY (150 MMG)
     Route: 048
  13. AMBISOME [Concomitant]
     Active Substance: AMPHOTERICIN B
     Dosage: 410 MG, UNK, TIW
     Route: 042
  14. FAMOTIDINE. [Concomitant]
     Active Substance: FAMOTIDINE
     Dosage: 20 MG, 1X/DAY
     Route: 048

REACTIONS (2)
  - Disease progression [Not Recovered/Not Resolved]
  - Acute lymphocytic leukaemia [Not Recovered/Not Resolved]
